FAERS Safety Report 17235378 (Version 1)
Quarter: 2020Q1

REPORT INFORMATION
  Report Type: Report from Study
  Country: US (occurrence: US)
  Receive Date: 20200106
  Receipt Date: 20200106
  Transmission Date: 20200409
  Serious: Yes (Hospitalization, Other)
  Sender: FDA-Public Use
  Company Number: US-TEVA-2020-US-1163055

PATIENT
  Sex: Female

DRUGS (1)
  1. COPAXONE [Suspect]
     Active Substance: GLATIRAMER ACETATE
     Dosage: STRENGTH: UNKNOWN
     Route: 065

REACTIONS (4)
  - Multiple sclerosis relapse [Unknown]
  - Urinary tract infection [Recovered/Resolved]
  - Wheelchair user [Unknown]
  - Asthenia [Unknown]
